FAERS Safety Report 20170734 (Version 1)
Quarter: 2021Q4

REPORT INFORMATION
  Report Type: Spontaneous
  Country: US (occurrence: None)
  Receive Date: 20211210
  Receipt Date: 20211210
  Transmission Date: 20220303
  Serious: Yes (Hospitalization)
  Sender: FDA-Public Use
  Company Number: None

PATIENT
  Age: 72 Year
  Sex: Male

DRUGS (2)
  1. APIXABAN [Suspect]
     Active Substance: APIXABAN
     Indication: Atrial fibrillation
     Dosage: FREQUENCY : TWICE A DAY;?
     Route: 048
     Dates: start: 20210216
  2. AMIODARONE [Suspect]
     Active Substance: AMIODARONE

REACTIONS (3)
  - Anaemia [None]
  - Haemorrhage [None]
  - Dialysis [None]

NARRATIVE: CASE EVENT DATE: 20210824
